FAERS Safety Report 13572267 (Version 1)
Quarter: 2017Q2

REPORT INFORMATION
  Report Type: Spontaneous
  Country: US (occurrence: US)
  Receive Date: 20170523
  Receipt Date: 20170523
  Transmission Date: 20170830
  Serious: No
  Sender: FDA-Public Use
  Company Number: US-JNJFOC-20170520592

PATIENT
  Age: 59 Year
  Sex: Male

DRUGS (3)
  1. DEPAKOTE [Concomitant]
     Active Substance: DIVALPROEX SODIUM
     Indication: SCHIZOAFFECTIVE DISORDER
     Route: 048
     Dates: start: 20170428
  2. TRIHEXYPHENIDYLE [Concomitant]
     Active Substance: TRIHEXYPHENIDYL
     Indication: SCHIZOAFFECTIVE DISORDER
     Route: 065
     Dates: start: 20141013
  3. INVEGA TRINZA [Suspect]
     Active Substance: PALIPERIDONE PALMITATE
     Indication: SCHIZOAFFECTIVE DISORDER
     Route: 030
     Dates: start: 20170426

REACTIONS (6)
  - Syncope [Unknown]
  - Dyspnoea [Not Recovered/Not Resolved]
  - Product use in unapproved indication [Unknown]
  - Akathisia [Recovering/Resolving]
  - Off label use [Unknown]
  - Anxiety [Unknown]

NARRATIVE: CASE EVENT DATE: 20170426
